FAERS Safety Report 7245702-7 (Version None)
Quarter: 2011Q1

REPORT INFORMATION
  Report Type: 
  Country: None (occurrence: None)
  Receive Date: 20110126
  Receipt Date: 20110119
  Transmission Date: 20110831
  Serious: Yes (Other)
  Sender: FDA-Public Use
  Company Number: ES-GENZYME-CAMP-1001290

PATIENT
  Age: 30 Year
  Sex: Male

DRUGS (10)
  1. METHYLPREDNISOLONE [Concomitant]
     Dosage: 5 MG, QD
  2. MYCOPHENOLATE MOFETIL [Concomitant]
     Indication: IMMUNOSUPPRESSANT DRUG THERAPY
     Dosage: 2 G, QD
  3. PREDNISONE [Concomitant]
     Indication: IMMUNOSUPPRESSANT DRUG THERAPY
     Dosage: 5 MG, QD
  4. CAMPATH [Suspect]
     Indication: IMMUNOSUPPRESSANT DRUG THERAPY
     Dosage: 30 MG, UNK
     Route: 065
     Dates: start: 20071101
  5. SIROLIMUS [Concomitant]
     Indication: IMMUNOSUPPRESSANT DRUG THERAPY
  6. METHYLPREDNISOLONE [Concomitant]
     Dosage: 250 MG, ONCE ON DAY 2 POD
  7. METHYLPREDNISOLONE [Concomitant]
     Indication: IMMUNOSUPPRESSANT DRUG THERAPY
     Dosage: 500 MG, ONCE ON DAY 1 POD
  8. CARVEDILOL [Concomitant]
     Indication: HYPERTENSION
     Dosage: 6.25 MG OVER 12 HOURS
  9. NIFEDIPINE [Concomitant]
     Indication: HYPERTENSION
     Dosage: 30 MG OVER 24 HOURS
  10. TACROLIMUS [Concomitant]
     Indication: IMMUNOSUPPRESSANT DRUG THERAPY

REACTIONS (3)
  - CYTOKINE RELEASE SYNDROME [None]
  - TRANSPLANT REJECTION [None]
  - PERIPHERAL ISCHAEMIA [None]
